FAERS Safety Report 13496536 (Version 1)
Quarter: 2017Q2

REPORT INFORMATION
  Report Type: Spontaneous
  Country: US (occurrence: US)
  Receive Date: 20170428
  Receipt Date: 20170428
  Transmission Date: 20170830
  Serious: Yes (Death, Life-Threatening, Hospitalization)
  Sender: FDA-Public Use
  Company Number: None

PATIENT
  Age: 73 Year
  Sex: Male
  Weight: 76.1 kg

DRUGS (1)
  1. NIVOLUMAB [Suspect]
     Active Substance: NIVOLUMAB
     Indication: HEPATIC CANCER
     Dosage: ?          OTHER FREQUENCY:EVERY 3 WEEKS;?
     Route: 042
     Dates: start: 20170222, end: 20170222

REACTIONS (10)
  - Off label use [None]
  - Dyspnoea [None]
  - Myocarditis [None]
  - Rhabdomyolysis [None]
  - Cardiac arrest [None]
  - Musculoskeletal pain [None]
  - Nausea [None]
  - Diarrhoea [None]
  - Hepatitis [None]
  - Liver injury [None]

NARRATIVE: CASE EVENT DATE: 20170306
